FAERS Safety Report 4586154-5 (Version None)
Quarter: 2005Q1

REPORT INFORMATION
  Report Type: 
  Country: None (occurrence: None)
  Receive Date: 20050125
  Receipt Date: 20041019
  Transmission Date: 20050727
  Serious: No
  Sender: FDA-Public Use
  Company Number: USA041081505

PATIENT
  Age: 90 Year
  Sex: Female
  Weight: 48 kg

DRUGS (3)
  1. FORTEO [Suspect]
     Indication: OSTEOPOROSIS
     Dosage: 20 UG/L DAY
     Dates: start: 20031001
  2. EVISTA [Suspect]
     Indication: OSTEOPOROSIS
     Dates: start: 20000101, end: 20031001
  3. CALCIUM AND VITAMIN D [Concomitant]

REACTIONS (1)
  - BONE DENSITY DECREASED [None]
